FAERS Safety Report 4668958-3 (Version None)
Quarter: 2005Q2

REPORT INFORMATION
  Report Type: 
  Country: None (occurrence: None)
  Receive Date: 20050523
  Receipt Date: 20041203
  Transmission Date: 20051028
  Serious: Yes (Other)
  Sender: FDA-Public Use
  Company Number: GB-GLAXOSMITHKLINE-B0359428A

PATIENT
  Sex: Male

DRUGS (7)
  1. PAROXETINE HCL [Suspect]
     Route: 065
     Dates: start: 19980101
  2. CITALOPRAM HYDROBROMIDE [Concomitant]
  3. PARACETAMOL [Concomitant]
  4. ALCOHOL [Concomitant]
  5. IBUPROFEN [Concomitant]
  6. ANTIBIOTICS [Concomitant]
  7. PSEUDOEPHEDRINE HCL [Concomitant]

REACTIONS (5)
  - COMPLETED SUICIDE [None]
  - DRUG WITHDRAWAL SYNDROME [None]
  - ILL-DEFINED DISORDER [None]
  - INTENTIONAL MISUSE [None]
  - MULTIPLE DRUG OVERDOSE [None]
